FAERS Safety Report 6679249-3 (Version None)
Quarter: 2010Q2

REPORT INFORMATION
  Report Type: 
  Country: None (occurrence: None)
  Receive Date: 20100409
  Receipt Date: 20100329
  Transmission Date: 20101027
  Serious: Yes (Other)
  Sender: FDA-Public Use
  Company Number: DSU-2010-00235(1) LOG NO: 2010S1000381

PATIENT
  Age: 53 Year
  Sex: Male

DRUGS (1)
  1. BENICAR [Suspect]
     Indication: DRUG USE FOR UNKNOWN INDICATION
     Dosage: PER ORAL
     Route: 048
     Dates: start: 20030101

REACTIONS (6)
  - CEREBROVASCULAR ACCIDENT [None]
  - DRUG INEFFECTIVE [None]
  - HYPERTENSION [None]
  - PITUITARY TUMOUR [None]
  - RENAL IMPAIRMENT [None]
  - RENAL ISCHAEMIA [None]
